FAERS Safety Report 9164055 (Version 9)
Quarter: 2014Q2

REPORT INFORMATION
  Report Type: Report from Study
  Country: US (occurrence: US)
  Receive Date: 20130314
  Receipt Date: 20140519
  Transmission Date: 20141212
  Serious: Yes (Hospitalization)
  Sender: FDA-Public Use
  Company Number: US-MERCK-1303USA003592

PATIENT
  Age: 72 Year
  Sex: Male
  Weight: 86.17 kg

DRUGS (11)
  1. ASENAPINE MALEATE-BIPOLAR DISORDER [Suspect]
     Indication: BIPOLAR I DISORDER
     Dosage: 1 DF, BID
     Route: 060
     Dates: start: 20130210, end: 20130213
  2. BENZONATATE [Concomitant]
     Dosage: 100 MG, BID
     Route: 048
     Dates: start: 20130224, end: 20130225
  3. LOPERAMIDE HYDROCHLORIDE [Concomitant]
     Dosage: 4 MG, ONCE
     Route: 048
     Dates: start: 20130215, end: 20130215
  4. LOPERAMIDE HYDROCHLORIDE [Concomitant]
     Dosage: 2 MG, QID,PRN
     Route: 048
     Dates: start: 20130215, end: 20130225
  5. ACETAMINOPHEN [Concomitant]
     Indication: PAIN
     Dosage: 1000 MG, PRN, Q6 DEGREE
     Route: 048
     Dates: start: 20130205, end: 20130225
  6. MYLANTA [Concomitant]
     Indication: DYSPEPSIA
     Dosage: 30 ML, 200/200/20MG/5ML, QID, PRN
     Route: 048
     Dates: start: 20130205, end: 20130225
  7. MAGNESIUM HYDROXIDE [Concomitant]
     Indication: CONSTIPATION
     Dosage: 30ML,400 MG/5ML SUS, QD,PRN
     Route: 048
     Dates: start: 20130205, end: 20130225
  8. TRAZODONE HYDROCHLORIDE [Concomitant]
     Indication: INSOMNIA
     Dosage: 100 MG, HS PRN
     Route: 048
     Dates: start: 20130205, end: 20130207
  9. TRAZODONE HYDROCHLORIDE [Concomitant]
     Dosage: 50 MG, HS PRN
     Route: 048
     Dates: start: 20130216, end: 20130220
  10. ZOLPIDEM TARTRATE [Concomitant]
     Dosage: 10 MG, HS,PRN
     Route: 048
     Dates: start: 20130207, end: 20130220
  11. MYLANTA [Concomitant]
     Indication: DYSPEPSIA
     Dosage: 30 ML, DAILY PRN;200/200/20MG/5ML
     Route: 048
     Dates: start: 20130205, end: 20130225

REACTIONS (2)
  - Bipolar I disorder [Recovered/Resolved]
  - Pneumonia [Recovered/Resolved]
